FAERS Safety Report 9199227 (Version 1)
Quarter: 2013Q1

REPORT INFORMATION
  Report Type: Spontaneous
  Country: US (occurrence: None)
  Receive Date: 20130325
  Receipt Date: 20130325
  Transmission Date: 20140127
  Serious: No
  Sender: FDA-Public Use
  Company Number: 2013US-004600

PATIENT
  Age: 59 Year
  Sex: Female
  Weight: 66 kg

DRUGS (20)
  1. OMONTYS (PEGINESATIDE) SOLUTION FOR INJECTION [Suspect]
     Indication: NEPHROGENIC ANAEMIA
     Route: 042
     Dates: start: 20130212, end: 20130212
  2. LEXAPRO (ESCITALOPRAM OXALATE) [Concomitant]
  3. SYNTHROID (LEVOTHYROXINE SODIUM) [Concomitant]
  4. BUMETANIDE (BUMETANIDE) [Concomitant]
  5. NOVOLOG (INSULIN ASPART) [Concomitant]
  6. LANTUS (INSULIN GLARGINE) [Concomitant]
  7. LORAZEPAM (LORAZEPAM) [Concomitant]
  8. NIFEDIPINE (NIFEDIPINE) [Concomitant]
  9. PROTONIX (PANTOPRAZOLE SODIUM SESQUIHYDRATE) [Concomitant]
  10. CARVEDILOL (CARVEDILOL) [Concomitant]
  11. ASA (ACETYLSALICYLIC ACID) [Concomitant]
  12. PLAVIX (CLOPIDOGREL BISULFATE) [Concomitant]
  13. PROGRAF (TACROLIMUS) [Concomitant]
  14. VITAMIN D (ERGOCALCIFEROL) [Concomitant]
  15. MVI (VITAMINS NOS) [Concomitant]
  16. RENVELA (SEVELAMER CARBONATE) [Concomitant]
  17. ZEMPLAR (PARICALCITOL) [Concomitant]
  18. VENOFER [Concomitant]
  19. HEPARIN (HEPARIN) [Concomitant]
  20. EPOGEN (EPOETIN ALFA) [Concomitant]

REACTIONS (4)
  - Pain in extremity [None]
  - Headache [None]
  - Hypersensitivity [None]
  - Crying [None]
